FAERS Safety Report 7565581-8 (Version None)
Quarter: 2011Q2

REPORT INFORMATION
  Report Type: 
  Country: None (occurrence: None)
  Receive Date: 20110615
  Receipt Date: 20110602
  Transmission Date: 20111010
  Serious: Yes (Life-Threatening)
  Sender: FDA-Public Use
  Company Number: 2011AP001120

PATIENT
  Age: 42 Year
  Sex: Male

DRUGS (10)
  1. OMEPRAZOLE [Suspect]
     Indication: PRODUCT USED FOR UNKNOWN INDICATION
     Dosage: 40 MG;	PO
     Route: 048
     Dates: start: 20110421, end: 20110517
  2. POTASSIUM CHLORIDE [Concomitant]
  3. MULTIVITAMIN [Concomitant]
  4. POTASSIUM BICARBONATE (POTASSIUM BICARBONATE) [Concomitant]
  5. THIAMINE HCL [Concomitant]
  6. LACTULOSE [Concomitant]
  7. RIBOFLAVIN (RIBOFLAVIN) [Concomitant]
  8. THIAMINE (THIAMINE) [Concomitant]
  9. NICOTINAMIDE [Concomitant]
  10. PYRIDOXINE HYDROCHLORIDE (PYRIDOXINE HYDROCHLORIDE) [Concomitant]

REACTIONS (6)
  - RENAL FAILURE [None]
  - DRUG RASH WITH EOSINOPHILIA AND SYSTEMIC SYMPTOMS [None]
  - EOSINOPENIA [None]
  - LYMPHOPENIA [None]
  - CONFUSIONAL STATE [None]
  - VASCULITIC RASH [None]
